FAERS Safety Report 14535602 (Version 1)
Quarter: 2018Q1

REPORT INFORMATION
  Report Type: Spontaneous
  Country: US (occurrence: US)
  Receive Date: 20180214
  Receipt Date: 20180214
  Transmission Date: 20180509
  Serious: Yes (Hospitalization)
  Sender: FDA-Public Use
  Company Number: None

PATIENT
  Sex: Female

DRUGS (3)
  1. XELJANZ XR [Suspect]
     Active Substance: TOFACITINIB CITRATE
     Indication: RHEUMATOID ARTHRITIS
     Route: 048
     Dates: start: 20171110, end: 20180201
  2. PREDNISONE. [Concomitant]
     Active Substance: PREDNISONE
  3. OXYBNUTYNIN [Concomitant]

REACTIONS (1)
  - Pyrexia [None]
